FAERS Safety Report 13612770 (Version 1)
Quarter: 2017Q2

REPORT INFORMATION
  Report Type: Spontaneous
  Country: US (occurrence: US)
  Receive Date: 20170605
  Receipt Date: 20170605
  Transmission Date: 20170830
  Serious: No
  Sender: FDA-Public Use
  Company Number: US-ALLERGAN-1710054US

PATIENT
  Age: 79 Year
  Sex: Female

DRUGS (6)
  1. JUVEDERM [Concomitant]
     Active Substance: HYALURONIC ACID
     Indication: PRODUCT USED FOR UNKNOWN INDICATION
     Dosage: UNK, SINGLE
     Dates: start: 20170307, end: 20170307
  2. BOTOX [Concomitant]
     Active Substance: ONABOTULINUMTOXINA
     Indication: PRODUCT USED FOR UNKNOWN INDICATION
     Dosage: UNK, SINGLE
     Route: 030
     Dates: start: 20170307, end: 20170307
  3. ALLEGRA [Concomitant]
     Active Substance: FEXOFENADINE HYDROCHLORIDE
     Indication: HYPERSENSITIVITY
     Dosage: UNK
     Route: 048
  4. KYBELLA [Suspect]
     Active Substance: DEOXYCHOLIC ACID
     Indication: FAT TISSUE INCREASED
     Dosage: UNK
     Route: 058
     Dates: start: 20170307, end: 20170307
  5. BABY ASPIRIN [Concomitant]
     Active Substance: ASPIRIN
     Indication: PROPHYLAXIS
     Dosage: 1 DF, QD
     Route: 048
  6. IBUPROFEN. [Concomitant]
     Active Substance: IBUPROFEN
     Indication: ARTHRALGIA
     Dosage: UNK, PRN
     Route: 048

REACTIONS (2)
  - Off label use [Unknown]
  - Injection site nodule [Not Recovered/Not Resolved]

NARRATIVE: CASE EVENT DATE: 20170307
